FAERS Safety Report 8890400 (Version 4)
Quarter: 2012Q4

REPORT INFORMATION
  Report Type: 
  Country: US (occurrence: US)
  Receive Date: 20121106
  Receipt Date: 20121227
  Transmission Date: 20130627
  Serious: Yes (Hospitalization, Other)
  Sender: FDA-Public Use
  Company Number: US-MERCK-1211USA000258

PATIENT
  Age: 37 None
  Sex: Female
  Weight: 68.27 kg

DRUGS (3)
  1. PEGINTRON [Suspect]
     Indication: HEPATITIS C
     Dosage: UNK
     Dates: start: 20120710
  2. RIBAVIRIN [Suspect]
     Indication: HEPATITIS C
     Dosage: UNK
     Route: 048
     Dates: start: 20120710
  3. TELAPREVIR [Suspect]
     Indication: HEPATITIS C
     Dosage: UNK
     Route: 048
     Dates: start: 20120710

REACTIONS (39)
  - Transient ischaemic attack [Unknown]
  - Angina pectoris [Unknown]
  - Dyspnoea [Unknown]
  - Dehydration [Unknown]
  - Bone pain [Unknown]
  - Ear pain [Unknown]
  - Musculoskeletal disorder [Unknown]
  - Back pain [Unknown]
  - Hypoaesthesia [Unknown]
  - Gait disturbance [Unknown]
  - Dyspepsia [Unknown]
  - Asthma [Unknown]
  - Nausea [Unknown]
  - Decreased appetite [Unknown]
  - Fatigue [Unknown]
  - Injection site reaction [Unknown]
  - Depression [Unknown]
  - Blood pressure decreased [Unknown]
  - Pyrexia [Unknown]
  - Influenza like illness [Unknown]
  - Headache [Unknown]
  - Malaise [Unknown]
  - Hearing impaired [Unknown]
  - Syncope [Unknown]
  - Chest pain [Unknown]
  - Pleurisy [Unknown]
  - Pain [Unknown]
  - Blood pressure abnormal [Unknown]
  - Swelling face [Unknown]
  - Pharyngeal oedema [Unknown]
  - Agitation [Unknown]
  - Weight decreased [Unknown]
  - Vomiting [Unknown]
  - Deafness [Unknown]
  - Tinnitus [Unknown]
  - Vertigo [Unknown]
  - Muscle spasms [Unknown]
  - Dyspnoea [Unknown]
  - Myalgia [Unknown]
